FAERS Safety Report 6994541-0 (Version None)
Quarter: 2010Q3

REPORT INFORMATION
  Report Type: 
  Country: None (occurrence: None)
  Receive Date: 20100915
  Receipt Date: 20100915
  Transmission Date: 20110219
  Serious: Yes (Other)
  Sender: FDA-Public Use
  Company Number: None

PATIENT
  Sex: Female
  Weight: 88.4514 kg

DRUGS (1)
  1. MIRENA [Suspect]
     Indication: CONTRACEPTION
     Dosage: INTRA-UTERINE
     Route: 015
     Dates: start: 20091201, end: 20100301

REACTIONS (18)
  - ABDOMINAL PAIN [None]
  - ALOPECIA [None]
  - ANXIETY [None]
  - ARTHRALGIA [None]
  - ASTHENIA [None]
  - DEPRESSION [None]
  - FEELING ABNORMAL [None]
  - FIBROMYALGIA [None]
  - HAEMORRHAGE [None]
  - HAIR COLOUR CHANGES [None]
  - HEADACHE [None]
  - LIBIDO DECREASED [None]
  - MOOD SWINGS [None]
  - MUSCLE SPASMS [None]
  - MYALGIA [None]
  - PELVIC PAIN [None]
  - VAGINAL INFECTION [None]
  - WEIGHT INCREASED [None]
